FAERS Safety Report 16375508 (Version 8)
Quarter: 2019Q3

REPORT INFORMATION
  Report Type: Spontaneous
  Country: JP (occurrence: JP)
  Receive Date: 20190531
  Receipt Date: 20190815
  Transmission Date: 20191004
  Serious: Yes (Other)
  Sender: FDA-Public Use
  Company Number: JP-BIOGEN-2019BI00742834

PATIENT
  Age: 41 Year
  Sex: Female

DRUGS (3)
  1. IMUSERA [Suspect]
     Active Substance: FINGOLIMOD HYDROCHLORIDE
     Indication: MULTIPLE SCLEROSIS
     Dosage: TWO OR THREE TIMES PER WEEK ON EVERY OTHER WEEK
     Route: 048
     Dates: start: 201201, end: 20190419
  2. TECFIDERA [Suspect]
     Active Substance: DIMETHYL FUMARATE
     Indication: MULTIPLE SCLEROSIS
     Route: 048
     Dates: start: 20190417
  3. TECFIDERA [Suspect]
     Active Substance: DIMETHYL FUMARATE
     Route: 048
     Dates: start: 20190426, end: 201905

REACTIONS (9)
  - Musculoskeletal stiffness [Unknown]
  - Hyperthermia [Unknown]
  - Visual impairment [Not Recovered/Not Resolved]
  - Urinary tract infection [Unknown]
  - Diplegia [Not Recovered/Not Resolved]
  - Lymphocyte count decreased [Unknown]
  - Bedridden [Not Recovered/Not Resolved]
  - Aphasia [Unknown]
  - Multiple sclerosis relapse [Unknown]

NARRATIVE: CASE EVENT DATE: 2019
